FAERS Safety Report 5553113-5 (Version None)
Quarter: 2007Q4

REPORT INFORMATION
  Report Type: 
  Country: None (occurrence: None)
  Receive Date: 20071212
  Receipt Date: 20070706
  Transmission Date: 20080405
  Serious: No
  Sender: FDA-Public Use
  Company Number: US-AMGEN-KDL231170

PATIENT
  Sex: Female
  Weight: 83.5 kg

DRUGS (2)
  1. ENBREL [Suspect]
     Indication: RHEUMATOID ARTHRITIS
     Route: 058
     Dates: start: 20031223
  2. PLAQUENIL [Concomitant]
     Dates: start: 20060101

REACTIONS (2)
  - CATARACT OPERATION [None]
  - EYE INFECTION [None]
